FAERS Safety Report 15054033 (Version 1)
Quarter: 2018Q2

REPORT INFORMATION
  Report Type: Report from Study
  Country: DE (occurrence: DE)
  Receive Date: 20180622
  Receipt Date: 20180622
  Transmission Date: 20180711
  Serious: Yes (Life-Threatening)
  Sender: FDA-Public Use
  Company Number: DE-AMGEN-DEUNI2018083849

PATIENT
  Age: 65 Year
  Sex: Male
  Weight: 45 kg

DRUGS (9)
  1. PANITUMUMAB [Suspect]
     Active Substance: PANITUMUMAB
     Dosage: 335 MG, UNK
     Route: 042
     Dates: start: 20180514
  2. FOLINIC ACID [Suspect]
     Active Substance: LEUCOVORIN
     Dosage: 660 MG, UNK
     Route: 065
     Dates: start: 20180514
  3. PANTOZOL [Concomitant]
     Active Substance: PANTOPRAZOLE SODIUM
     Indication: PROPHYLAXIS
     Dosage: 40 MG, QD
     Route: 048
     Dates: start: 20180209
  4. FOLINIC ACID [Suspect]
     Active Substance: LEUCOVORIN
     Indication: COLORECTAL CANCER METASTATIC
     Dosage: 650 MG, UNK
     Route: 065
     Dates: start: 20180228
  5. PANITUMUMAB [Suspect]
     Active Substance: PANITUMUMAB
     Indication: COLORECTAL CANCER METASTATIC
     Dosage: 330 MG, UNK
     Route: 042
     Dates: start: 20180314
  6. FLUOROURACIL. [Suspect]
     Active Substance: FLUOROURACIL
     Dosage: 3910-3960 MG, UNK
     Route: 042
     Dates: start: 20180228
  7. IRINOTECAN [Suspect]
     Active Substance: IRINOTECAN
     Indication: COLORECTAL CANCER METASTATIC
     Dosage: 290 MG, UNK
     Route: 065
     Dates: start: 20180228
  8. IRINOTECAN [Suspect]
     Active Substance: IRINOTECAN
     Dosage: 295 MG, UNK
     Route: 065
     Dates: start: 20180514
  9. FLUOROURACIL. [Suspect]
     Active Substance: FLUOROURACIL
     Indication: COLORECTAL CANCER METASTATIC
     Dosage: 650-660 MG, UNK
     Route: 040
     Dates: start: 20180228

REACTIONS (1)
  - Neutrophil count decreased [Recovered/Resolved]

NARRATIVE: CASE EVENT DATE: 20180604
